FAERS Safety Report 8314016-6 (Version None)
Quarter: 2012Q2

REPORT INFORMATION
  Report Type: 
  Country: None (occurrence: None)
  Receive Date: 20120426
  Receipt Date: 20110808
  Transmission Date: 20120825
  Serious: Yes (Other)
  Sender: FDA-Public Use
  Company Number: US-TEVA-US023318

PATIENT
  Sex: Female
  Weight: 66 kg

DRUGS (6)
  1. PROVIGIL [Suspect]
     Indication: SOMNOLENCE
     Dosage: 400 MILLIGRAM; ON AND OFF PROVIGIL THERAPY FOR THE PAST 18 MONTHS
     Route: 048
     Dates: start: 20061101
  2. DEPAKOTE ER [Concomitant]
     Indication: CONVULSION
     Dosage: 1000 MILLIGRAM; 2 TABLETS
     Route: 048
     Dates: start: 19990101
  3. ULTRAM [Concomitant]
     Indication: BACK PAIN
     Dosage: 250 MILLIGRAM; 5 TABLETS PER DAY
     Route: 048
     Dates: start: 19940101
  4. SEROQUEL [Concomitant]
     Indication: PARANOIA
     Dosage: 200 MILLIGRAM; DOESN'T TAKE THAT OFTEN
     Route: 048
  5. XANAX [Concomitant]
     Indication: PANIC ATTACK
     Dosage: 1 MILLIGRAM;
     Route: 048
  6. ALLEGRA [Concomitant]
     Indication: DRUG HYPERSENSITIVITY
     Route: 048
     Dates: start: 20070601

REACTIONS (9)
  - RASH [None]
  - ACARODERMATITIS [None]
  - SKIN BURNING SENSATION [None]
  - EPISTAXIS [None]
  - FORMICATION [None]
  - FALL [None]
  - PARANOIA [None]
  - NASAL CONGESTION [None]
  - SKIN EXFOLIATION [None]
